FAERS Safety Report 25505640 (Version 1)
Quarter: 2025Q3

REPORT INFORMATION
  Report Type: Spontaneous
  Country: US (occurrence: US)
  Receive Date: 20250702
  Receipt Date: 20250702
  Transmission Date: 20251021
  Serious: No
  Sender: VERONA PHARMA
  Company Number: US-VERONA PHARMA-VER-004913

PATIENT
  Age: 69 Year
  Sex: Female

DRUGS (3)
  1. OHTUVAYRE [Suspect]
     Active Substance: ENSIFENTRINE
     Indication: Chronic obstructive pulmonary disease
     Dosage: 3 MILLIGRAM, BID (START DATE: 3 WEEKS AGO)
  2. OHTUVAYRE [Suspect]
     Active Substance: ENSIFENTRINE
     Indication: Emphysema
  3. OHTUVAYRE [Suspect]
     Active Substance: ENSIFENTRINE
     Indication: Pulmonary hypertension

REACTIONS (1)
  - Back pain [Unknown]

NARRATIVE: CASE EVENT DATE: 20250421
